FAERS Safety Report 8907259 (Version 2)
Quarter: 2013Q1

REPORT INFORMATION
  Report Type: Spontaneous
  Country: US (occurrence: US)
  Receive Date: 20121114
  Receipt Date: 20130207
  Transmission Date: 20140127
  Serious: No
  Sender: FDA-Public Use
  Company Number: US-009507513-1211USA003622

PATIENT
  Sex: Male

DRUGS (1)
  1. AZASITE [Suspect]
     Indication: BLEPHARITIS
     Dosage: 2 DF, BID
     Route: 047
     Dates: start: 20111105

REACTIONS (2)
  - Intentional drug misuse [Unknown]
  - Incorrect storage of drug [Unknown]
